FAERS Safety Report 19489618 (Version 1)
Quarter: 2021Q3

REPORT INFORMATION
  Report Type: Spontaneous
  Country: US (occurrence: US)
  Receive Date: 20210704
  Receipt Date: 20210704
  Transmission Date: 20211014
  Serious: No
  Sender: FDA-Public Use
  Company Number: US-SA-2021SA216346

PATIENT
  Sex: Female

DRUGS (3)
  1. FLUOXETINE [Concomitant]
     Active Substance: FLUOXETINE HYDROCHLORIDE
  2. DUPIXENT [Suspect]
     Active Substance: DUPILUMAB
     Indication: DERMATITIS ATOPIC
     Dosage: 300 MG, QOW
     Route: 058
     Dates: start: 20200610
  3. BUPROPION. [Concomitant]
     Active Substance: BUPROPION

REACTIONS (3)
  - Dermatitis atopic [Not Recovered/Not Resolved]
  - Product dose omission in error [Unknown]
  - Rash [Not Recovered/Not Resolved]
